FAERS Safety Report 10143096 (Version 1)
Quarter: 2014Q2

REPORT INFORMATION
  Report Type: Spontaneous
  Country: SK (occurrence: SK)
  Receive Date: 20140430
  Receipt Date: 20140430
  Transmission Date: 20141212
  Serious: Yes (Death, Hospitalization)
  Sender: FDA-Public Use
  Company Number: SK-CELGENEUS-260-21880-14043388

PATIENT
  Sex: Female

DRUGS (1)
  1. REVLIMID [Suspect]
     Indication: MYELOFIBROSIS
     Route: 048

REACTIONS (3)
  - Cardiac failure [Fatal]
  - Surgery [Unknown]
  - Nosocomial infection [Unknown]
